FAERS Safety Report 10540596 (Version 1)
Quarter: 2014Q4

REPORT INFORMATION
  Report Type: Spontaneous
  Country: AU (occurrence: AU)
  Receive Date: 20141024
  Receipt Date: 20141024
  Transmission Date: 20150529
  Serious: Yes (Death, Other)
  Sender: FDA-Public Use
  Company Number: AU-CELGENE-AUS-2014103749

PATIENT
  Age: 66 Year
  Sex: Female

DRUGS (1)
  1. POMALIDOMIDE [Suspect]
     Active Substance: POMALIDOMIDE
     Indication: PRODUCT USED FOR UNKNOWN INDICATION
     Route: 048

REACTIONS (4)
  - Sepsis [Unknown]
  - Death [Fatal]
  - Pancytopenia [Unknown]
  - Malaise [Unknown]

NARRATIVE: CASE EVENT DATE: 20140918
